FAERS Safety Report 16050603 (Version 2)
Quarter: 2019Q1

REPORT INFORMATION
  Report Type: Spontaneous
  Country: DE (occurrence: DE)
  Receive Date: 20190308
  Receipt Date: 20190320
  Transmission Date: 20190418
  Serious: Yes (Hospitalization)
  Sender: FDA-Public Use
  Company Number: DE-BIODELIVERY SCIENCES INTERNATIONAL-2019BDSI0174

PATIENT
  Age: 62 Year
  Sex: Female
  Weight: 45 kg

DRUGS (52)
  1. SALMETEROL/FLUTICASONE [Suspect]
     Active Substance: FLUTICASONE PROPIONATE\SALMETEROL XINAFOATE
     Indication: PRODUCT USED FOR UNKNOWN INDICATION
     Dosage: 2DF,QD 50/500
     Route: 055
  2. EZETIMIBE. [Suspect]
     Active Substance: EZETIMIBE
     Indication: PRODUCT USED FOR UNKNOWN INDICATION
     Route: 048
  3. POTASSIUM [Suspect]
     Active Substance: POTASSIUM
     Indication: PRODUCT USED FOR UNKNOWN INDICATION
     Dosage: (1-0-0-0)
     Route: 048
  4. LEVODOPA/BENSERAZIDE HYDROCHLORIDE [Suspect]
     Active Substance: BENSERAZIDE HYDROCHLORIDE\LEVODOPA
     Dosage: 1-0-2.5-0
     Route: 048
  5. SIROLIMUS. [Suspect]
     Active Substance: SIROLIMUS
     Indication: PRODUCT USED FOR UNKNOWN INDICATION
     Route: 048
  6. SPIRONOLACTONE. [Suspect]
     Active Substance: SPIRONOLACTONE
     Route: 065
  7. URSODEOXYCHOLIC ACID [Suspect]
     Active Substance: URSODIOL
     Route: 048
  8. AZATHIOPRINE. [Suspect]
     Active Substance: AZATHIOPRINE
     Indication: PRODUCT USED FOR UNKNOWN INDICATION
     Route: 048
  9. POTASSIUM CHLORIDE. [Suspect]
     Active Substance: POTASSIUM CHLORIDE
     Indication: PRODUCT USED FOR UNKNOWN INDICATION
     Dosage: 1-0-0-0
     Route: 048
  10. CAFFEINE/PARACETAMOL/PROPYPHENAZONE [Suspect]
     Active Substance: ACETAMINOPHEN\CAFFEINE\PROPYPHENAZONE
     Route: 048
  11. LEVODOPA/BENSERAZIDE HYDROCHLORIDE [Suspect]
     Active Substance: BENSERAZIDE HYDROCHLORIDE\LEVODOPA
     Indication: PRODUCT USED FOR UNKNOWN INDICATION
     Route: 048
  12. SIROLIMUS. [Suspect]
     Active Substance: SIROLIMUS
     Route: 048
  13. FLUTICASONE PROPIONATE/SALMETEROL XINAFOATE [Suspect]
     Active Substance: FLUTICASONE PROPIONATE\SALMETEROL XINAFOATE
     Indication: PRODUCT USED FOR UNKNOWN INDICATION
     Dosage: 50|500 UG, 1-0-1-0
     Route: 055
  14. FUROSEMIDE. [Suspect]
     Active Substance: FUROSEMIDE
     Route: 048
  15. HYDROCHLOROTHIAZIDE. [Suspect]
     Active Substance: HYDROCHLOROTHIAZIDE
     Indication: PRODUCT USED FOR UNKNOWN INDICATION
     Route: 048
  16. CAFFEINE/PARACETAMOL/PROPYPHENAZONE [Suspect]
     Active Substance: ACETAMINOPHEN\CAFFEINE\PROPYPHENAZONE
     Route: 065
  17. MAGNESIUM CITRATE/MAGNESIUM NICOTINATE/MAGNESIUM GLUTAMATE [Suspect]
     Active Substance: MAGNESIUM
     Indication: PRODUCT USED FOR UNKNOWN INDICATION
     Dosage: 2-0-0-0
     Route: 048
  18. MAGNESIUM CITRATE/MAGNESIUM NICOTINATE/MAGNESIUM GLUTAMATE [Suspect]
     Active Substance: MAGNESIUM
     Route: 048
  19. FENTANYL CITRATE. [Suspect]
     Active Substance: FENTANYL CITRATE
     Indication: PRODUCT USED FOR UNKNOWN INDICATION
     Dosage: DUROGESIC TTS
     Route: 048
  20. SALMETEROL/FLUTICASONE [Suspect]
     Active Substance: FLUTICASONE PROPIONATE\SALMETEROL XINAFOATE
     Route: 055
  21. COLECALCIFEROL [Suspect]
     Active Substance: CHOLECALCIFEROL
     Route: 048
  22. EZETIMIBE. [Suspect]
     Active Substance: EZETIMIBE
     Indication: PRODUCT USED FOR UNKNOWN INDICATION
     Dosage: 1 UNK, QD)
     Route: 048
  23. FENTANYL. [Suspect]
     Active Substance: FENTANYL
     Indication: PRODUCT USED FOR UNKNOWN INDICATION
     Route: 048
  24. FENTANYL. [Suspect]
     Active Substance: FENTANYL
     Route: 047
  25. FLUTICASONE PROPIONATE/SALMETEROL XINAFOATE [Suspect]
     Active Substance: FLUTICASONE PROPIONATE\SALMETEROL XINAFOATE
     Dosage: 1 OT, QD
     Route: 055
  26. AMBROXOL HYDROCHLORIDE [Suspect]
     Active Substance: AMBROXOL HYDROCHLORIDE
     Indication: PRODUCT USED FOR UNKNOWN INDICATION
     Dosage: REQUIREMENT, BEDARF
     Route: 048
  27. MAGNESIUM CITRATE/MAGNESIUM NICOTINATE/MAGNESIUM GLUTAMATE [Suspect]
     Active Substance: MAGNESIUM
     Route: 048
  28. MAGNESIUM CITRATE/MAGNESIUM NICOTINATE/MAGNESIUM GLUTAMATE [Suspect]
     Active Substance: MAGNESIUM
     Dosage: 2-0-0-0
     Route: 048
  29. COLECALCIFEROL [Suspect]
     Active Substance: CHOLECALCIFEROL
     Indication: PRODUCT USED FOR UNKNOWN INDICATION
     Dosage: 1-0-0-0
     Route: 048
  30. SPIRONOLACTONE. [Suspect]
     Active Substance: SPIRONOLACTONE
     Indication: PRODUCT USED FOR UNKNOWN INDICATION
     Route: 048
  31. URSODEOXYCHOLIC ACID [Suspect]
     Active Substance: URSODIOL
     Route: 048
  32. CAFFEINE/PARACETAMOL/PROPYPHENAZONE [Suspect]
     Active Substance: ACETAMINOPHEN\CAFFEINE\PROPYPHENAZONE
     Dosage: 30 TROPFEN, 1-1-1-0
  33. TIOTROPIUM BROMIDE [Suspect]
     Active Substance: TIOTROPIUM BROMIDE
     Indication: PRODUCT USED FOR UNKNOWN INDICATION
     Dosage: 1-0-1-0
     Route: 055
  34. FUROSEMIDE. [Suspect]
     Active Substance: FUROSEMIDE
     Dosage: 4-0-0-0
     Route: 048
  35. HYDROCHLOROTHIAZIDE. [Suspect]
     Active Substance: HYDROCHLOROTHIAZIDE
     Dosage: 2.5 MG, QD (1-0-0-0)
     Route: 048
  36. CAFFEINE/PARACETAMOL/PROPYPHENAZONE [Suspect]
     Active Substance: ACETAMINOPHEN\CAFFEINE\PROPYPHENAZONE
     Route: 048
  37. LACTULOSE. [Suspect]
     Active Substance: LACTULOSE
     Indication: PRODUCT USED FOR UNKNOWN INDICATION
     Dosage: (1 MEASURING CUP, 0-0-1-0)
     Route: 048
  38. CAFFEINE/PARACETAMOL/PROPYPHENAZONE [Suspect]
     Active Substance: ACETAMINOPHEN\CAFFEINE\PROPYPHENAZONE
     Indication: PRODUCT USED FOR UNKNOWN INDICATION
     Dosage: 30 DROPS, 1-1-1-0
  39. AMBROXOL HYDROCHLORIDE [Suspect]
     Active Substance: AMBROXOL HYDROCHLORIDE
     Dosage: 30 DROP (DRP) (DROP (1/12 MILLILITRE) BEDARF
     Route: 048
  40. COLECALCIFEROL [Suspect]
     Active Substance: CHOLECALCIFEROL
     Dosage: 100 OT, QD (100 IE, 1-0-0-0)
     Route: 048
  41. PANTOPRAZOLE SODIUM SESQUIHYDRATE [Suspect]
     Active Substance: PANTOPRAZOLE SODIUM
     Indication: PRODUCT USED FOR UNKNOWN INDICATION
     Dosage: 40 MG, QD 1-0-0-0
  42. URSODEOXYCHOLIC ACID [Suspect]
     Active Substance: URSODIOL
     Indication: PRODUCT USED FOR UNKNOWN INDICATION
     Dosage: 1-0-1-0
     Route: 048
  43. TIOTROPIUM BROMIDE [Suspect]
     Active Substance: TIOTROPIUM BROMIDE
     Dosage: 18 G, BID, 1-0-1-0
     Route: 055
  44. FUROSEMIDE. [Suspect]
     Active Substance: FUROSEMIDE
     Indication: PRODUCT USED FOR UNKNOWN INDICATION
     Route: 048
  45. MAGNESIUM CITRATE/MAGNESIUM NICOTINATE/MAGNESIUM GLUTAMATE [Suspect]
     Active Substance: MAGNESIUM
     Dosage: 2 OT, QD
     Route: 048
  46. CAFFEINE/PARACETAMOL/PROPYPHENAZONE [Suspect]
     Active Substance: ACETAMINOPHEN\CAFFEINE\PROPYPHENAZONE
     Dosage: 1-1-1-0
     Route: 048
  47. SIMVASTATIN. [Suspect]
     Active Substance: SIMVASTATIN
     Indication: PRODUCT USED FOR UNKNOWN INDICATION
     Dosage: 40 MG, QD, 0-0-1-0
     Route: 048
  48. SPIRONOLACTONE. [Suspect]
     Active Substance: SPIRONOLACTONE
     Dosage: 100 MG, BID (2-0-0-0)
     Route: 048
  49. FUROSEMIDE. [Suspect]
     Active Substance: FUROSEMIDE
     Dosage: (40 MG,QID)
     Route: 065
  50. AZATHIOPRINE. [Suspect]
     Active Substance: AZATHIOPRINE
     Dosage: REQUIREMENT, BEDARFAS NECESSARY
     Route: 048
  51. CAFFEINE/PARACETAMOL/PROPYPHENAZONE [Suspect]
     Active Substance: ACETAMINOPHEN\CAFFEINE\PROPYPHENAZONE
     Route: 048
  52. CAFFEINE/PARACETAMOL/PROPYPHENAZONE [Suspect]
     Active Substance: ACETAMINOPHEN\CAFFEINE\PROPYPHENAZONE
     Indication: PRODUCT USED FOR UNKNOWN INDICATION
     Route: 048

REACTIONS (4)
  - Product prescribing error [Unknown]
  - General physical health deterioration [Unknown]
  - Intentional product misuse [Unknown]
  - Drug interaction [Unknown]

NARRATIVE: CASE EVENT DATE: 20150916
